FAERS Safety Report 13832199 (Version 1)
Quarter: 2017Q3

REPORT INFORMATION
  Report Type: Spontaneous
  Country: US (occurrence: US)
  Receive Date: 20170803
  Receipt Date: 20170803
  Transmission Date: 20171127
  Serious: No
  Sender: FDA-Public Use
  Company Number: US-ROCHE-695796

PATIENT
  Age: 88 Year
  Sex: Female
  Weight: 65.5 kg

DRUGS (2)
  1. LEVOTHYROXINE. [Concomitant]
     Active Substance: LEVOTHYROXINE
     Route: 065
  2. BONIVA [Suspect]
     Active Substance: IBANDRONATE SODIUM
     Indication: OSTEOPOROSIS
     Dosage: FORM: PILL
     Route: 048

REACTIONS (7)
  - Mobility decreased [Unknown]
  - Pain [Unknown]
  - Back pain [Unknown]
  - Peripheral swelling [Recovered/Resolved]
  - Bone pain [Unknown]
  - Groin pain [Unknown]
  - Abdominal discomfort [Unknown]

NARRATIVE: CASE EVENT DATE: 20100208
